FAERS Safety Report 22174403 (Version 1)
Quarter: 2023Q2

REPORT INFORMATION
  Report Type: Spontaneous
  Country: US (occurrence: None)
  Receive Date: 20230405
  Receipt Date: 20230405
  Transmission Date: 20230721
  Serious: Yes (Death)
  Sender: FDA-Public Use
  Company Number: US-ROCHE-3319913

PATIENT
  Sex: Female

DRUGS (1)
  1. OCREVUS [Suspect]
     Active Substance: OCRELIZUMAB
     Indication: Relapsing multiple sclerosis
     Dosage: 1ST DOSE OF OCREVUS ON 16/MAR
     Route: 065

REACTIONS (4)
  - Seizure [Fatal]
  - Aspiration [Fatal]
  - Sinus tachycardia [Unknown]
  - Palpitations [Unknown]
